FAERS Safety Report 9981349 (Version 1)
Quarter: 2014Q1

REPORT INFORMATION
  Report Type: Spontaneous
  Country: KR (occurrence: KR)
  Receive Date: 20140307
  Receipt Date: 20140307
  Transmission Date: 20141002
  Serious: Yes (Other)
  Sender: FDA-Public Use
  Company Number: KR-MYLANLABS-2014S1004400

PATIENT
  Age: 46 Year
  Sex: Female

DRUGS (7)
  1. PROCYCLIDINE [Suspect]
     Indication: EXTRAPYRAMIDAL DISORDER
     Route: 065
  2. PREDNISOLONE [Suspect]
     Indication: RESPIRATORY FAILURE
     Dosage: 15MG
     Route: 065
  3. PREDNISOLONE [Suspect]
     Indication: RESPIRATORY FAILURE
     Dosage: 10MG
     Route: 065
  4. ARIPIPRAZOLE [Concomitant]
     Indication: SCHIZOPHRENIA, DISORGANISED TYPE
     Dosage: 15MG
     Route: 065
  5. PALIPERIDONE [Concomitant]
     Indication: SCHIZOPHRENIA, DISORGANISED TYPE
     Dosage: 6MG
     Route: 065
  6. QUETIAPINE [Concomitant]
     Indication: SCHIZOPHRENIA, DISORGANISED TYPE
     Dosage: 1200MG
     Route: 065
  7. HALOPERIDOL [Concomitant]
     Indication: SCHIZOPHRENIA, DISORGANISED TYPE
     Dosage: UP TO 10MG
     Route: 065

REACTIONS (6)
  - Myasthenia gravis [Recovered/Resolved]
  - Respiratory distress [Recovered/Resolved]
  - Psychotic disorder [Recovered/Resolved]
  - Persecutory delusion [Recovered/Resolved]
  - Somatic delusion [Recovered/Resolved]
  - Insomnia [Recovered/Resolved]
